FAERS Safety Report 15165333 (Version 1)
Quarter: 2018Q3

REPORT INFORMATION
  Report Type: Spontaneous
  Country: MY (occurrence: MY)
  Receive Date: 20180719
  Receipt Date: 20180719
  Transmission Date: 20181010
  Serious: Yes (Other)
  Sender: FDA-Public Use
  Company Number: MY-PFIZER INC-2018290339

PATIENT
  Age: 72 Year
  Sex: Male

DRUGS (1)
  1. VANCOMYCIN HCL [Suspect]
     Active Substance: VANCOMYCIN HYDROCHLORIDE
     Indication: STAPHYLOCOCCAL INFECTION
     Dosage: UNK
     Route: 042

REACTIONS (2)
  - Erythema multiforme [Recovered/Resolved]
  - Pruritus [Recovered/Resolved]
